FAERS Safety Report 10208059 (Version 4)
Quarter: 2014Q3

REPORT INFORMATION
  Report Type: Spontaneous
  Country: IT (occurrence: None)
  Receive Date: 20140527
  Receipt Date: 20140806
  Transmission Date: 20150326
  Serious: Yes (Hospitalization)
  Sender: FDA-Public Use
  Company Number: AUR-APL-2014-06020

PATIENT
  Age: 49 Year
  Sex: Male

DRUGS (7)
  1. AZATHIOPRINE (AZATHIOPRINE) [Concomitant]
     Active Substance: AZATHIOPRINE
  2. DEURSIL [Concomitant]
     Active Substance: URSODIOL
  3. KAYEXALATE [Concomitant]
     Active Substance: SODIUM POLYSTYRENE SULFONATE
  4. RAMIPRIL TABLET (RAMIPRIL) TABLET, UNKNOWN [Suspect]
     Active Substance: RAMIPRIL
     Indication: HYPERTENSION
     Dosage: TOTAL
     Route: 048
     Dates: start: 20140515, end: 20140515
  5. DELTACORTENE (PREDNISONE) [Concomitant]
     Active Substance: PREDNISONE
  6. XANAX [Concomitant]
     Active Substance: ALPRAZOLAM
  7. ATENOLOL (ATENOLOL) [Concomitant]
     Active Substance: ATENOLOL

REACTIONS (3)
  - Tongue oedema [None]
  - Face oedema [None]
  - Lip oedema [None]

NARRATIVE: CASE EVENT DATE: 20140515
